FAERS Safety Report 5130275-5 (Version None)
Quarter: 2006Q4

REPORT INFORMATION
  Report Type: 
  Country: None (occurrence: None)
  Receive Date: 20061018
  Receipt Date: 20061018
  Transmission Date: 20070319
  Serious: Yes (Other)
  Sender: FDA-Public Use
  Company Number: None

PATIENT
  Age: 88 Year
  Sex: Male
  Weight: 104.3273 kg

DRUGS (1)
  1. ZOCOR [Suspect]
     Indication: CEREBROVASCULAR ACCIDENT PROPHYLAXIS
     Dosage: ONE ONE DAILY PO
     Route: 048
     Dates: start: 20061004, end: 20061016

REACTIONS (3)
  - BALANCE DISORDER [None]
  - CONFUSIONAL STATE [None]
  - MUSCULAR WEAKNESS [None]
